FAERS Safety Report 7036001-7 (Version None)
Quarter: 2010Q4

REPORT INFORMATION
  Report Type: 
  Country: None (occurrence: None)
  Receive Date: 20101008
  Receipt Date: 20100930
  Transmission Date: 20110411
  Serious: Yes (Hospitalization)
  Sender: FDA-Public Use
  Company Number: IT-ABBOTT-10P-083-0674893-00

PATIENT
  Sex: Male

DRUGS (5)
  1. CLARITHROMYCIN [Suspect]
     Indication: BRONCHITIS
     Dosage: TOTAL
     Route: 048
     Dates: start: 20100927, end: 20100927
  2. BENTELAN [Concomitant]
     Indication: BRONCHOSPASM
     Route: 048
     Dates: start: 20100925, end: 20100925
  3. SOLU-MEDROL [Concomitant]
     Indication: BRONCHOSPASM
     Route: 042
     Dates: start: 20100926, end: 20100926
  4. DELTACORTENE [Concomitant]
     Indication: BRONCHOSPASM
     Route: 048
     Dates: start: 20100927, end: 20100927
  5. BRONCOVALEAS [Concomitant]
     Indication: BRONCHOSPASM
     Route: 055
     Dates: start: 20100926, end: 20100927

REACTIONS (2)
  - CONFUSIONAL STATE [None]
  - DEPRESSED LEVEL OF CONSCIOUSNESS [None]
